FAERS Safety Report 6486961-8 (Version None)
Quarter: 2009Q4

REPORT INFORMATION
  Report Type: 
  Country: None (occurrence: None)
  Receive Date: 20091210
  Receipt Date: 20091201
  Transmission Date: 20100525
  Serious: Yes (Other)
  Sender: FDA-Public Use
  Company Number: PHHY2009JP48370

PATIENT
  Age: 1 Day
  Weight: 3.448 kg

DRUGS (1)
  1. DIOVAN [Suspect]
     Indication: HYPERTENSION
     Dosage: 40 MG/DAY
     Route: 064
     Dates: start: 20071227

REACTIONS (5)
  - DRUG EXPOSURE DURING PREGNANCY [None]
  - HYPOGLYCAEMIA [None]
  - NEONATAL ASPHYXIA [None]
  - NEONATAL ASPIRATION [None]
  - RESUSCITATION [None]
